FAERS Safety Report 24609218 (Version 3)
Quarter: 2025Q1

REPORT INFORMATION
  Report Type: Spontaneous
  Country: US (occurrence: US)
  Receive Date: 20241112
  Receipt Date: 20250130
  Transmission Date: 20250409
  Serious: No
  Sender: BRISTOL-MYERS SQUIBB COMPANY
  Company Number: US-BRISTOL-MYERS SQUIBB COMPANY-2024-173394

PATIENT
  Age: 94 Year
  Sex: Male

DRUGS (2)
  1. POMALYST [Suspect]
     Active Substance: POMALIDOMIDE
     Indication: Plasma cell myeloma
     Dosage: QD
     Route: 048
  2. POMALYST [Suspect]
     Active Substance: POMALIDOMIDE
     Dosage: QD
     Route: 048

REACTIONS (4)
  - Infusion related reaction [Unknown]
  - Therapy interrupted [Unknown]
  - Product distribution issue [Unknown]
  - Localised infection [Unknown]

NARRATIVE: CASE EVENT DATE: 20250101
